FAERS Safety Report 4989859-7 (Version None)
Quarter: 2006Q2

REPORT INFORMATION
  Report Type: 
  Country: None (occurrence: None)
  Receive Date: 20060503
  Receipt Date: 20060426
  Transmission Date: 20061013
  Serious: Yes (Other)
  Sender: FDA-Public Use
  Company Number: JP-AVENTIS-200611377JP

PATIENT
  Age: 23 Year
  Sex: Male

DRUGS (2)
  1. LASIX [Suspect]
     Route: 041
  2. NU-LOTAN [Concomitant]

REACTIONS (1)
  - PANCYTOPENIA [None]
